FAERS Safety Report 10199290 (Version 2)
Quarter: 2014Q2

REPORT INFORMATION
  Report Type: Spontaneous
  Country: US (occurrence: US)
  Receive Date: 20140527
  Receipt Date: 20140619
  Transmission Date: 20141212
  Serious: Yes (Death)
  Sender: FDA-Public Use
  Company Number: US-CELGENEUS-163-22393-14054446

PATIENT
  Age: 75 Year
  Sex: Male

DRUGS (1)
  1. ISTODAX [Suspect]
     Indication: NON-HODGKIN^S LYMPHOMA
     Route: 041
     Dates: start: 20140205, end: 20140219

REACTIONS (2)
  - Multi-organ failure [Fatal]
  - Non-Hodgkin^s lymphoma [Fatal]
